FAERS Safety Report 9171891 (Version 3)
Quarter: 2013Q2

REPORT INFORMATION
  Report Type: Spontaneous
  Country: US (occurrence: None)
  Receive Date: 20130318
  Receipt Date: 20130401
  Transmission Date: 20140414
  Serious: Yes (Death)
  Sender: FDA-Public Use
  Company Number: ADR-2013UNK044

PATIENT
  Age: 147 Day
  Sex: 0

DRUGS (2)
  1. NEVIRAPINE [Suspect]
     Indication: ACQUIRED IMMUNODEFICIENCY SYNDROME
     Route: 048
     Dates: start: 20060302
  2. TRUVADA [Concomitant]

REACTIONS (5)
  - Abortion induced [None]
  - Spina bifida [None]
  - Maternal drugs affecting foetus [None]
  - Exposure during pregnancy [None]
  - Anencephaly [None]
